FAERS Safety Report 11468249 (Version 1)
Quarter: 2015Q3

REPORT INFORMATION
  Report Type: Spontaneous
  Country: US (occurrence: None)
  Receive Date: 20150904
  Receipt Date: 20150904
  Transmission Date: 20151125
  Serious: Yes (Hospitalization)
  Sender: FDA-Public Use
  Company Number: None

PATIENT
  Age: 39 Year
  Sex: Female
  Weight: 77.11 kg

DRUGS (2)
  1. CLINDAMYCIN [Suspect]
     Active Substance: CLINDAMYCIN\CLINDAMYCIN PHOSPHATE
     Indication: STREPTOCOCCUS TEST POSITIVE
     Dosage: INTO A VEIN
     Dates: start: 20150401, end: 20150410
  2. CLINDAMYCIN [Suspect]
     Active Substance: CLINDAMYCIN\CLINDAMYCIN PHOSPHATE
     Indication: PREGNANCY
     Dosage: INTO A VEIN
     Dates: start: 20150401, end: 20150410

REACTIONS (2)
  - Maternal exposure during pregnancy [None]
  - Clostridium difficile infection [None]

NARRATIVE: CASE EVENT DATE: 20150804
